FAERS Safety Report 5897302-9 (Version None)
Quarter: 2008Q3

REPORT INFORMATION
  Report Type: 
  Country: None (occurrence: None)
  Receive Date: 20080904
  Receipt Date: 20070809
  Transmission Date: 20090109
  Serious: Yes (Hospitalization)
  Sender: FDA-Public Use
  Company Number: TNZUS200700064

PATIENT
  Age: 78 Year
  Sex: Female
  Weight: 76 kg

DRUGS (2)
  1. INNOHEP [Suspect]
     Indication: ILL-DEFINED DISORDER
     Dosage: 10000 IU (ONCE DAILY),SUBCUTANEOUS
     Route: 058
  2. SUTENT [Suspect]
     Indication: CERVIX CARCINOMA
     Dosage: 50 MG (ONCE DAILY X 4 WEEKS, THEN OFF X 2 WEEKS),ORAL
     Route: 048
     Dates: start: 20070515, end: 20070602

REACTIONS (2)
  - INTERNATIONAL NORMALISED RATIO INCREASED [None]
  - VAGINAL HAEMORRHAGE [None]
